FAERS Safety Report 5342723-6 (Version None)
Quarter: 2007Q2

REPORT INFORMATION
  Report Type: 
  Country: None (occurrence: None)
  Receive Date: 20070601
  Receipt Date: 20070521
  Transmission Date: 20071010
  Serious: Yes (Other)
  Sender: FDA-Public Use
  Company Number: US-PFIZER INC-2007041444

PATIENT
  Sex: Female
  Weight: 65.909 kg

DRUGS (13)
  1. LYRICA [Suspect]
     Indication: SPINAL COLUMN STENOSIS
  2. LYRICA [Suspect]
     Indication: SURGERY
  3. LYRICA [Suspect]
     Indication: MYOPATHY
  4. LYRICA [Suspect]
     Indication: NEUROPATHY
  5. NEURONTIN [Suspect]
     Indication: SPINAL COLUMN STENOSIS
     Dates: start: 20070504, end: 20070507
  6. NEURONTIN [Suspect]
     Indication: SURGERY
  7. NEURONTIN [Suspect]
     Indication: MYOPATHY
  8. NEURONTIN [Suspect]
     Indication: NEUROPATHY
  9. PLAVIX [Concomitant]
  10. HYTRIN [Concomitant]
  11. LOTENSIN [Concomitant]
  12. ATENOLOL [Concomitant]
  13. DETROL LA [Concomitant]

REACTIONS (2)
  - ACTIVITIES OF DAILY LIVING IMPAIRED [None]
  - PAIN [None]
